FAERS Safety Report 13828908 (Version 1)
Quarter: 2017Q3

REPORT INFORMATION
  Report Type: Spontaneous
  Country: US (occurrence: US)
  Receive Date: 20170802
  Receipt Date: 20170802
  Transmission Date: 20171127
  Serious: Yes (Other)
  Sender: FDA-Public Use
  Company Number: None

PATIENT
  Age: 36 Year
  Sex: Female
  Weight: 56.7 kg

DRUGS (1)
  1. REMICADE [Suspect]
     Active Substance: INFLIXIMAB
     Indication: CROHN^S DISEASE
     Dosage: OTHER FREQUENCY:WK 0,2,6 + Q8WKS;?
     Route: 042
     Dates: start: 20170316, end: 20170622

REACTIONS (5)
  - Nausea [None]
  - Therapy cessation [None]
  - Rash [None]
  - Pustular psoriasis [None]
  - Pain [None]

NARRATIVE: CASE EVENT DATE: 20170622
